FAERS Safety Report 5702079-3 (Version None)
Quarter: 2008Q2

REPORT INFORMATION
  Report Type: 
  Country: None (occurrence: None)
  Receive Date: 20080411
  Receipt Date: 20070905
  Transmission Date: 20081010
  Serious: No
  Sender: FDA-Public Use
  Company Number: US-ABBOTT-07P-163-0370984-00

PATIENT
  Sex: Male

DRUGS (4)
  1. DEPAKOTE [Suspect]
     Indication: DRUG USE FOR UNKNOWN INDICATION
  2. CARBAMAZEPINE [Interacting]
     Indication: DRUG USE FOR UNKNOWN INDICATION
  3. RIBAVIRIN [Interacting]
     Indication: HEPATITIS C
     Dates: start: 20070324
  4. PEGASYS [Suspect]
     Indication: DRUG USE FOR UNKNOWN INDICATION

REACTIONS (13)
  - ABDOMINAL PAIN UPPER [None]
  - DRUG INTERACTION [None]
  - EPILEPSY [None]
  - FATIGUE [None]
  - INSOMNIA [None]
  - MALAISE [None]
  - MIGRAINE [None]
  - NIGHT SWEATS [None]
  - PLATELET COUNT DECREASED [None]
  - PRURITUS [None]
  - RED BLOOD CELL COUNT DECREASED [None]
  - WEIGHT DECREASED [None]
  - WHITE BLOOD CELL COUNT DECREASED [None]
